FAERS Safety Report 5693295-8 (Version None)
Quarter: 2008Q2

REPORT INFORMATION
  Report Type: 
  Country: None (occurrence: None)
  Receive Date: 20080403
  Receipt Date: 20080324
  Transmission Date: 20081010
  Serious: Yes (Other)
  Sender: FDA-Public Use
  Company Number: US-ROCHE-554904

PATIENT
  Age: 18 Year
  Sex: Male

DRUGS (2)
  1. TAMIFLU [Suspect]
     Route: 065
  2. DECONGESTANT [Concomitant]

REACTIONS (1)
  - CLAUSTROPHOBIA [None]
